FAERS Safety Report 8423424-4 (Version None)
Quarter: 2012Q2

REPORT INFORMATION
  Report Type: 
  Country: None (occurrence: None)
  Receive Date: 20120608
  Receipt Date: 20120530
  Transmission Date: 20120825
  Serious: Yes (Other)
  Sender: FDA-Public Use
  Company Number: NO-JNJFOC-20111011210

PATIENT
  Sex: Male

DRUGS (9)
  1. REMICADE [Suspect]
     Route: 042
     Dates: start: 20110415
  2. REMICADE [Suspect]
     Indication: COLITIS ULCERATIVE
     Route: 042
     Dates: start: 20110331
  3. REMICADE [Suspect]
     Route: 042
     Dates: start: 20110307
  4. REMICADE [Suspect]
     Indication: CROHN'S DISEASE
     Route: 042
     Dates: start: 20110331
  5. SULFASALAZINE [Concomitant]
     Indication: COLITIS ULCERATIVE
     Route: 048
     Dates: start: 19820101
  6. REMICADE [Suspect]
     Route: 042
     Dates: start: 20110608, end: 20110608
  7. REMICADE [Suspect]
     Route: 042
     Dates: start: 20110415
  8. REMICADE [Suspect]
     Route: 042
     Dates: start: 20110307
  9. REMICADE [Suspect]
     Route: 042
     Dates: start: 20110608, end: 20110608

REACTIONS (3)
  - URTICARIA [None]
  - PSORIASIS [None]
  - ARTHRITIS [None]
